FAERS Safety Report 7365561-1 (Version None)
Quarter: 2011Q1

REPORT INFORMATION
  Report Type: 
  Country: None (occurrence: None)
  Receive Date: 20110322
  Receipt Date: 20100908
  Transmission Date: 20110831
  Serious: Yes (Hospitalization, Other)
  Sender: FDA-Public Use
  Company Number: US-BAYER-201021678NA

PATIENT
  Sex: Female
  Weight: 99.773 kg

DRUGS (6)
  1. RITALIN [Concomitant]
     Indication: ATTENTION DEFICIT/HYPERACTIVITY DISORDER
  2. CIPROFLOXACIN [Concomitant]
     Indication: URINARY TRACT INFECTION
     Dosage: UNK
  3. YAZ [Suspect]
     Indication: CONTRACEPTION
     Dosage: UNK UNK, QD
     Route: 048
     Dates: start: 20090128, end: 20091110
  4. HYDROCODONE BITARTRATE AND ACETAMINOPHEN [Concomitant]
  5. PREVACID [Concomitant]
  6. IBUPROFEN [Concomitant]
     Indication: PAIN

REACTIONS (4)
  - PAIN [None]
  - GALLBLADDER DISORDER [None]
  - CHOLELITHIASIS [None]
  - CHOLECYSTITIS CHRONIC [None]
